FAERS Safety Report 25218036 (Version 1)
Quarter: 2025Q2

REPORT INFORMATION
  Report Type: Spontaneous
  Country: US (occurrence: US)
  Receive Date: 20250421
  Receipt Date: 20250421
  Transmission Date: 20250717
  Serious: No
  Sender: ROCHE
  Company Number: US-ROCHE-10000263413

PATIENT
  Sex: Female

DRUGS (1)
  1. ERIVEDGE [Suspect]
     Active Substance: VISMODEGIB
     Indication: Malignant melanoma
     Dosage: MAY TAKE WITH OR WITHOUT FOOD, SWALLOW CAPSULE WHOLE, DO NOT OPEN OR CRUSH.
     Route: 048
     Dates: start: 201811

REACTIONS (4)
  - Pain [Unknown]
  - Nausea [Unknown]
  - Vomiting [Unknown]
  - Off label use [Unknown]
